FAERS Safety Report 20279175 (Version 2)
Quarter: 2022Q1

REPORT INFORMATION
  Report Type: Report from Study
  Country: TR (occurrence: TR)
  Receive Date: 20220103
  Receipt Date: 20220110
  Transmission Date: 20220424
  Serious: Yes (Death, Hospitalization)
  Sender: FDA-Public Use
  Company Number: TR-ABBVIE-22K-161-4218939-00

PATIENT
  Sex: Male
  Weight: 72 kg

DRUGS (7)
  1. CARBIDOPA\LEVODOPA [Suspect]
     Active Substance: CARBIDOPA\LEVODOPA
     Indication: Parkinson^s disease
     Dosage: MORNING DOSE (ML): 7.50 CONTINIOUS DOSE (ML): 4.20 EXTRA DOSE (ML): 1.30
     Route: 050
     Dates: start: 20190722, end: 20211220
  2. CARBIDOPA\LEVODOPA [Suspect]
     Active Substance: CARBIDOPA\LEVODOPA
  3. SEROQUEL [Concomitant]
     Active Substance: QUETIAPINE FUMARATE
     Indication: Parkinson^s disease
     Route: 048
  4. DOPADEX SR [Concomitant]
     Indication: Parkinson^s disease
     Dosage: 25 MG/100 MG
     Route: 048
  5. PK-MERZ [Concomitant]
     Active Substance: AMANTADINE
     Indication: Parkinson^s disease
     Route: 048
  6. SARS-COV-2 VACCINE [Concomitant]
     Indication: COVID-19 immunisation
     Dosage: FIRST DOSE WAS ADMINISTERED.
     Route: 030
  7. SARS-COV-2 VACCINE [Concomitant]
     Dosage: SECOND DOSE WAS ADMINISTERED
     Route: 030

REACTIONS (2)
  - Death [Fatal]
  - Dyspnoea [Unknown]

NARRATIVE: CASE EVENT DATE: 20211226
